FAERS Safety Report 5031756-5 (Version None)
Quarter: 2006Q2

REPORT INFORMATION
  Report Type: 
  Country: None (occurrence: None)
  Receive Date: 20060619
  Receipt Date: 20060524
  Transmission Date: 20061013
  Serious: Yes (Death, Life-Threatening)
  Sender: FDA-Public Use
  Company Number: 2006014924

PATIENT
  Age: 67 Year
  Sex: Female
  Weight: 99 kg

DRUGS (1)
  1. LYRICA [Suspect]
     Indication: NEURALGIA
     Dosage: 150 MG (75 MG, 2 IN 1 D), ORAL
     Route: 048
     Dates: start: 20060105, end: 20060106

REACTIONS (21)
  - ACUTE MYOCARDIAL INFARCTION [None]
  - BLOOD CREATININE INCREASED [None]
  - BLOOD UREA INCREASED [None]
  - CANDIDIASIS [None]
  - CARDIAC ARREST [None]
  - DIABETES MELLITUS [None]
  - DIARRHOEA [None]
  - ELECTROMECHANICAL DISSOCIATION [None]
  - GENERAL PHYSICAL CONDITION ABNORMAL [None]
  - HAEMODIALYSIS [None]
  - ILEUS PARALYTIC [None]
  - LUNG INFILTRATION [None]
  - MALAISE [None]
  - METABOLIC ACIDOSIS [None]
  - NAUSEA [None]
  - PUPIL FIXED [None]
  - PYREXIA [None]
  - RENAL FAILURE [None]
  - RESPIRATORY FAILURE [None]
  - RESPIRATORY TRACT INFECTION FUNGAL [None]
  - SHOCK [None]
